FAERS Safety Report 5942566-6 (Version None)
Quarter: 2008Q4

REPORT INFORMATION
  Report Type: 
  Country: None (occurrence: None)
  Receive Date: 20081105
  Receipt Date: 20081028
  Transmission Date: 20090506
  Serious: Yes (Hospitalization, Disabling)
  Sender: FDA-Public Use
  Company Number: US-MERCK-0805USA00734

PATIENT
  Age: 76 Year
  Sex: Female

DRUGS (2)
  1. FOSAMAX [Suspect]
     Indication: OSTEOPOROSIS
     Route: 048
     Dates: start: 19900101, end: 20070101
  2. FOSAMAX [Suspect]
     Route: 048

REACTIONS (7)
  - ABSCESS [None]
  - ARTHROPATHY [None]
  - BACK PAIN [None]
  - DENTAL CARIES [None]
  - HYPERTENSION [None]
  - OSTEONECROSIS [None]
  - RHEUMATOID ARTHRITIS [None]
